FAERS Safety Report 23718023 (Version 1)
Quarter: 2024Q2

REPORT INFORMATION
  Report Type: Spontaneous
  Country: US (occurrence: None)
  Receive Date: 20240405
  Receipt Date: 20240405
  Transmission Date: 20240715
  Serious: No
  Sender: FDA-Public Use
  Company Number: None

PATIENT
  Age: 64 Year
  Sex: Male

DRUGS (1)
  1. OFEV [Suspect]
     Active Substance: NINTEDANIB
     Indication: Interstitial lung disease
     Dosage: 150MG BID ORAL?
     Route: 048
     Dates: start: 20240124, end: 20240405

REACTIONS (2)
  - Colitis [None]
  - Pneumonia [None]

NARRATIVE: CASE EVENT DATE: 20240405
